FAERS Safety Report 6370287-7 (Version None)
Quarter: 2009Q3

REPORT INFORMATION
  Report Type: 
  Country: None (occurrence: None)
  Receive Date: 20090918
  Receipt Date: 20090918
  Transmission Date: 20100115
  Serious: Yes (Other)
  Sender: FDA-Public Use
  Company Number: 1022556-2009-00222

PATIENT
  Sex: Male

DRUGS (1)
  1. ACT FLUORIDE RINSE MINT 18 OZ [Suspect]
     Indication: DENTAL DISORDER PROPHYLAXIS
     Dosage: 10 ML, HS, ORAL RINSE
     Route: 048

REACTIONS (1)
  - URINARY RETENTION [None]
